FAERS Safety Report 14664525 (Version 1)
Quarter: 2018Q1

REPORT INFORMATION
  Report Type: Spontaneous
  Country: US (occurrence: US)
  Receive Date: 20180321
  Receipt Date: 20180321
  Transmission Date: 20180509
  Serious: Yes (Life-Threatening, Disabling, Other)
  Sender: FDA-Public Use
  Company Number: US-PFIZER INC-2018113464

PATIENT
  Age: 59 Year
  Sex: Male
  Weight: 114 kg

DRUGS (16)
  1. MICONAZOLE. [Concomitant]
     Active Substance: MICONAZOLE
     Indication: SKIN DISORDER
     Dosage: APPLY TO SKIN FOLDS, 2X/DAY
     Route: 061
  2. DOBUTAMINE HCL [Suspect]
     Active Substance: DOBUTAMINE HYDROCHLORIDE
     Indication: CARDIAC FAILURE CONGESTIVE
     Dosage: 5MCG/KG/MINUTE
     Route: 042
     Dates: start: 20180310, end: 20180314
  3. ASPIRIN. [Concomitant]
     Active Substance: ASPIRIN
     Indication: ROUTINE HEALTH MAINTENANCE
     Dosage: 325 MG, 1X/DAY
     Route: 048
  4. MUCINEX DM [Concomitant]
     Active Substance: DEXTROMETHORPHAN HYDROBROMIDE\GUAIFENESIN
     Indication: COUGH
     Dosage: 1 DF, 2X/DAY, AS NEEDED
     Route: 048
  5. NYSTATIN. [Concomitant]
     Active Substance: NYSTATIN
     Dosage: 5 ML, 4X/DAY
     Route: 048
  6. CARVEDILOL. [Concomitant]
     Active Substance: CARVEDILOL
     Indication: HYPERTENSION
     Dosage: 3.125 MG, 2X/DAY
  7. FLORANEX [Concomitant]
     Active Substance: LACTOBACILLUS ACIDOPHILUS\LACTOBACILLUS DELBRUECKII SUBSP. BULGARICUS
     Dosage: 1 DF, 1X/DAY
     Route: 048
  8. ZINC OXIDE. [Concomitant]
     Active Substance: ZINC OXIDE
     Indication: SKIN DISORDER
     Dosage: UNK, 3X/DAY
     Route: 061
  9. NORCO [Concomitant]
     Active Substance: ACETAMINOPHEN\HYDROCODONE BITARTRATE
     Indication: PAIN
     Dosage: 7.5 MG, AS NEEDED, EVERY 6 HOURS
  10. CITALOPRAM [Concomitant]
     Active Substance: CITALOPRAM HYDROBROMIDE
     Indication: DEPRESSION
     Dosage: 20 MG, 1X/DAY
     Route: 048
  11. MORPHINE [Concomitant]
     Active Substance: MORPHINE
     Indication: PAIN
     Dosage: 4 MG, AS NEEDED, EVERY 2 HOURS
     Route: 042
  12. TYLENOL [Concomitant]
     Active Substance: ACETAMINOPHEN
     Indication: PAIN
     Dosage: 650 MG, AS NEEDED
  13. SODIUM BICARBONATE. [Concomitant]
     Active Substance: SODIUM BICARBONATE
     Dosage: 1300 MG, 2X/DAY
  14. TYLENOL [Concomitant]
     Active Substance: ACETAMINOPHEN
     Indication: HEADACHE
  15. HUMALOG [Concomitant]
     Active Substance: INSULIN LISPRO
     Indication: DIABETES MELLITUS
     Dosage: SLIDING SCALE, AS NEEDED
     Route: 058
  16. THIAMINE. [Concomitant]
     Active Substance: THIAMINE
     Dosage: 100 MG, 1X/DAY
     Route: 048

REACTIONS (4)
  - Dysphemia [Unknown]
  - Generalised tonic-clonic seizure [Unknown]
  - Speech disorder [Unknown]
  - Tremor [Unknown]

NARRATIVE: CASE EVENT DATE: 20180314
